FAERS Safety Report 24460392 (Version 1)
Quarter: 2024Q4

REPORT INFORMATION
  Report Type: Spontaneous
  Country: CN (occurrence: CN)
  Receive Date: 20241018
  Receipt Date: 20241018
  Transmission Date: 20250114
  Serious: No
  Sender: ROCHE
  Company Number: CN-ROCHE-3546712

PATIENT
  Age: 63 Year
  Sex: Female
  Weight: 71.0 kg

DRUGS (20)
  1. MABTHERA [Suspect]
     Active Substance: RITUXIMAB
     Indication: Non-Hodgkin^s lymphoma
     Dosage: SUBSEQUENT DOSES: 14/DEC/2018, 21/JAN/2019, 16/FEB/2019, 21/MAR/2019, 02/MAY/2019, 30/MAY/2019, 09/J
     Route: 065
     Dates: start: 20181214
  2. MABTHERA [Suspect]
     Active Substance: RITUXIMAB
     Indication: Mantle cell lymphoma
  3. OBINUTUZUMAB [Concomitant]
     Active Substance: OBINUTUZUMAB
     Dosage: 23-JUN-2022,13-JUL-2022, D0
     Route: 042
     Dates: start: 20220623
  4. CYCLOPHOSPHAMIDE [Concomitant]
     Active Substance: CYCLOPHOSPHAMIDE
     Dosage: 14-DEC-2018,21-JAN-2019, 16-FEB-2019,21-MAR-2019,02-MAY-2019,
     Dates: start: 20181214
  5. CYCLOPHOSPHAMIDE [Concomitant]
     Active Substance: CYCLOPHOSPHAMIDE
     Dates: start: 20220607
  6. PIRARUBICIN HYDROCHLORIDE [Concomitant]
     Active Substance: PIRARUBICIN HYDROCHLORIDE
     Dosage: 14-DEC-2018,21-JAN-2019,R-CHOP,D1-2, 16-FEB-2019,21-MAR-2019,02-MAY-2019
     Dates: start: 20181214
  7. VINCRISTINE [Concomitant]
     Active Substance: VINCRISTINE
     Dosage: 14-DEC-2018,21-JAN-2019,16-FEB-2019,21-MAR-2019,02-MAY-2019,R-CHOP,D1
     Dates: start: 20181214
  8. PREDNISONE ACETATE [Concomitant]
     Active Substance: PREDNISONE ACETATE
     Dosage: 14-DEC-2018,21-JAN-2019, 16-FEB-2019,21-MAR-2019,02-MAY-2019,07-JUN-2022
     Dates: start: 20181214
  9. LENALIDOMIDE [Concomitant]
     Active Substance: LENALIDOMIDE
     Dosage: 16-FEB-2019,21-MAR-2019,02-MAY-2019,10MG/DAY, D1-14, 30-MAY-2019,09-JUN-2019,04-JUL-2019,10MG/DAY, D
     Dates: start: 20190216
  10. GEMCITABINE HYDROCHLORIDE [Concomitant]
     Active Substance: GEMCITABINE HYDROCHLORIDE
     Dosage: 30-MAY-2019,09-JUN-2019,04-JUL-2019,D1,D8
     Dates: start: 20190530
  11. CISPLATIN [Concomitant]
     Active Substance: CISPLATIN
     Dosage: 30-MAY-2019,09-JUN-2019,04-JUL-2019,D1
     Dates: start: 20190530
  12. ETOPOSIDE [Concomitant]
     Active Substance: ETOPOSIDE
     Dosage: 30-MAY-2019,09-JUN-2019,04-JUL-2019,100 MG D1-2, 50 MG D3
     Dates: start: 20190530
  13. DEXAMETHASONE [Concomitant]
     Active Substance: DEXAMETHASONE
     Dosage: 30-MAY-2019,09-JUN-2019,04-JUL-2019, D1-4
     Dates: start: 20190530
  14. BIAPENEM [Concomitant]
     Active Substance: BIAPENEM
     Indication: Anti-infective therapy
  15. VORICONAZOLE [Concomitant]
     Active Substance: VORICONAZOLE
     Indication: Anti-infective therapy
  16. METHYLPREDNISOLONE [Concomitant]
     Active Substance: METHYLPREDNISOLONE
     Indication: Antiinflammatory therapy
  17. POMALIDOMIDE [Concomitant]
     Active Substance: POMALIDOMIDE
     Dosage: 23-JUN-2022,13-JUL-2022, D1-14
     Dates: start: 20220623
  18. BENDAMUSTINE [Concomitant]
     Active Substance: BENDAMUSTINE
     Dosage: 23-JUN-2022,13-JUL-2022, D1-2
     Dates: start: 20220623
  19. CYTARABINE [Concomitant]
     Active Substance: CYTARABINE
     Dosage: TWICE
  20. NIFEDIPINE SUSTAINED RELEASE TABLETS (I) [Concomitant]
     Indication: Hypertension
     Route: 048

REACTIONS (2)
  - Off label use [Unknown]
  - Pruritus [Unknown]
